FAERS Safety Report 4847522-7 (Version None)
Quarter: 2005Q4

REPORT INFORMATION
  Report Type: 
  Country: None (occurrence: None)
  Receive Date: 20051207
  Receipt Date: 20051129
  Transmission Date: 20060501
  Serious: Yes (Death)
  Sender: FDA-Public Use
  Company Number: NL-BRISTOL-MYERS SQUIBB COMPANY-13200712

PATIENT
  Age: 67 Year
  Sex: Female

DRUGS (5)
  1. SINEMET [Suspect]
     Indication: PARKINSON'S DISEASE
     Route: 048
     Dates: start: 20050920, end: 20051014
  2. DESURIC [Concomitant]
     Dates: start: 20040101, end: 20051016
  3. HYDROCHLOROTHIAZIDE [Concomitant]
     Dates: start: 20020101, end: 20051101
  4. METOPROLOL [Concomitant]
     Dates: start: 20040101, end: 20051101
  5. SELEGILINE HCL [Concomitant]
     Dates: start: 20050101, end: 20051101

REACTIONS (1)
  - HEPATITIS TOXIC [None]
